FAERS Safety Report 6631674-2 (Version None)
Quarter: 2010Q1

REPORT INFORMATION
  Report Type: 
  Country: None (occurrence: None)
  Receive Date: 20100312
  Receipt Date: 20100301
  Transmission Date: 20100710
  Serious: Yes (Other)
  Sender: FDA-Public Use
  Company Number: US-GENZYME-CLOF-1000884

PATIENT

DRUGS (5)
  1. CLOLAR [Suspect]
     Indication: ACUTE LEUKAEMIA
     Dosage: 40 MG/M2, QDX5
     Route: 042
     Dates: start: 20100102, end: 20100106
  2. TOPOTECAN [Suspect]
     Indication: ACUTE LEUKAEMIA
     Dosage: UNK UNK, UNK
     Route: 042
     Dates: start: 20100101
  3. VINORELBINE [Suspect]
     Indication: ACUTE LEUKAEMIA
     Dosage: UNK UNK, UNK
     Route: 042
     Dates: start: 20100101
  4. THIOTEPA [Suspect]
     Indication: ACUTE LEUKAEMIA
     Dosage: UNK UNK, UNK
     Route: 042
     Dates: start: 20100101
  5. DEXAMETHASONE [Suspect]
     Indication: ACUTE LEUKAEMIA
     Dosage: UNK UNK, UNK
     Route: 042
     Dates: start: 20100101

REACTIONS (2)
  - APPENDICITIS [None]
  - DEVICE RELATED INFECTION [None]
